FAERS Safety Report 10099984 (Version 2)
Quarter: 2014Q2

REPORT INFORMATION
  Report Type: Spontaneous
  Country: US (occurrence: US)
  Receive Date: 20140423
  Receipt Date: 20140423
  Transmission Date: 20141212
  Serious: No
  Sender: FDA-Public Use
  Company Number: US-MYLANLABS-2014S1004220

PATIENT
  Age: 73 Year
  Sex: Female
  Weight: 54.43 kg

DRUGS (2)
  1. RIZATRIPTAN BENZOATE ORALLY DISINTEGRATING TABLETS [Suspect]
     Indication: MIGRAINE
     Route: 048
     Dates: start: 20140223
  2. ASPIRIN [Concomitant]

REACTIONS (3)
  - Drug effect delayed [Not Recovered/Not Resolved]
  - Migraine [Not Recovered/Not Resolved]
  - Dry mouth [Not Recovered/Not Resolved]
